FAERS Safety Report 12935231 (Version 1)
Quarter: 2016Q4

REPORT INFORMATION
  Report Type: Spontaneous
  Country: US (occurrence: US)
  Receive Date: 20161114
  Receipt Date: 20161114
  Transmission Date: 20170207
  Serious: No
  Sender: FDA-Public Use
  Company Number: US-JAZZ-2016-US-018237

PATIENT
  Sex: Female

DRUGS (11)
  1. XYREM [Suspect]
     Active Substance: SODIUM OXYBATE
     Indication: NARCOLEPSY
     Dosage: 2.25 G, BID
     Route: 048
     Dates: start: 201310, end: 201310
  2. FOCALIN [Concomitant]
     Active Substance: DEXMETHYLPHENIDATE HYDROCHLORIDE
  3. ZOLPIDEM                           /00914902/ [Concomitant]
     Active Substance: ZOLPIDEM\ZOLPIDEM TARTRATE
  4. EXCEDRIN EXTRA STRENGTH [Concomitant]
     Active Substance: ACETAMINOPHEN\ASPIRIN\CAFFEINE
  5. XYREM [Suspect]
     Active Substance: SODIUM OXYBATE
     Dosage: 3.5 G, BID
     Route: 048
     Dates: start: 201510
  6. BOTOX [Concomitant]
     Active Substance: ONABOTULINUMTOXINA
  7. XYREM [Suspect]
     Active Substance: SODIUM OXYBATE
     Dosage: DOSE ADJUSTMENTS
     Route: 048
     Dates: start: 201310, end: 201510
  8. STRATTERA [Concomitant]
     Active Substance: ATOMOXETINE HYDROCHLORIDE
  9. PROVIGIL [Concomitant]
     Active Substance: MODAFINIL
  10. LISINOPRIL. [Concomitant]
     Active Substance: LISINOPRIL
  11. CALCIUM + VIT D [Concomitant]
     Active Substance: CALCIUM\VITAMIN D

REACTIONS (1)
  - Pain [Not Recovered/Not Resolved]
